FAERS Safety Report 20746644 (Version 3)
Quarter: 2022Q2

REPORT INFORMATION
  Report Type: Spontaneous
  Country: US (occurrence: US)
  Receive Date: 20220425
  Receipt Date: 20220523
  Transmission Date: 20220721
  Serious: Yes (Other)
  Sender: FDA-Public Use
  Company Number: US-BAYER-2022A054560

PATIENT
  Age: 33 Year
  Sex: Male

DRUGS (2)
  1. KOGENATE FS [Suspect]
     Active Substance: ANTIHEMOPHILIC FACTOR, HUMAN RECOMBINANT
     Dosage: 5000 DF, PRN
     Route: 042
  2. KOGENATE FS [Suspect]
     Active Substance: ANTIHEMOPHILIC FACTOR, HUMAN RECOMBINANT
     Dosage: 4 DF, ONCE
     Route: 042
     Dates: start: 20220412

REACTIONS (2)
  - Haemorrhage [Recovered/Resolved]
  - Muscle haemorrhage [Not Recovered/Not Resolved]

NARRATIVE: CASE EVENT DATE: 20220212
